FAERS Safety Report 11248428 (Version 1)
Quarter: 2015Q3

REPORT INFORMATION
  Report Type: Spontaneous
  Country: US (occurrence: US)
  Receive Date: 20150708
  Receipt Date: 20150708
  Transmission Date: 20151125
  Serious: No
  Sender: FDA-Public Use
  Company Number: US-ELI_LILLY_AND_COMPANY-US200908000442

PATIENT
  Sex: Female

DRUGS (3)
  1. ALIVE [Concomitant]
     Dosage: UNK, UNKNOWN
     Route: 065
  2. CYMBALTA [Concomitant]
     Active Substance: DULOXETINE HYDROCHLORIDE
     Indication: FIBROMYALGIA
     Dosage: 60 MG, DAILY (1/D)
     Route: 065
     Dates: start: 20090722
  3. PROZAC [Suspect]
     Active Substance: FLUOXETINE HYDROCHLORIDE
     Indication: FIBROMYALGIA
     Dosage: UNK, DAILY (1/D)
     Route: 065
     Dates: start: 2001, end: 20090722

REACTIONS (9)
  - Asthenia [Recovered/Resolved]
  - Pruritus [Recovering/Resolving]
  - Pain [Recovered/Resolved]
  - Insomnia [Recovered/Resolved]
  - Personality change [Recovered/Resolved]
  - Off label use [Unknown]
  - Choking sensation [Recovered/Resolved]
  - Depression [Recovered/Resolved]
  - Urinary incontinence [Unknown]
